FAERS Safety Report 7108873-9 (Version None)
Quarter: 2010Q4

REPORT INFORMATION
  Report Type: 
  Country: None (occurrence: None)
  Receive Date: 20101117
  Receipt Date: 20101105
  Transmission Date: 20110411
  Serious: Yes (Other)
  Sender: FDA-Public Use
  Company Number: US-PFIZER INC-2010146892

PATIENT
  Sex: Female

DRUGS (1)
  1. PROCARDIA [Suspect]
     Dosage: 30 MG, UNK

REACTIONS (7)
  - ASTHENIA [None]
  - BLOOD PRESSURE FLUCTUATION [None]
  - BLOOD PRESSURE INCREASED [None]
  - CONSTIPATION [None]
  - FATIGUE [None]
  - NOCTURIA [None]
  - POLLAKIURIA [None]
